FAERS Safety Report 23466705 (Version 2)
Quarter: 2024Q1

REPORT INFORMATION
  Report Type: Other
  Country: IN (occurrence: IN)
  Receive Date: 20240201
  Receipt Date: 20240209
  Transmission Date: 20240409
  Serious: Yes (Death, Hospitalization, Other)
  Sender: FDA-Public Use
  Company Number: IN-LUPIN HEALTHCARE (UK) LIMITED-2024-00668

PATIENT

DRUGS (6)
  1. TIOTROPIUM BROMIDE [Suspect]
     Active Substance: TIOTROPIUM BROMIDE
     Indication: Dyspnoea
     Dosage: 1 DOSAGE FORM, BID, TWICE DAILY
     Route: 065
     Dates: start: 20220224
  2. FLUTICASONE PROPIONATE\FORMOTEROL FUMARATE [Suspect]
     Active Substance: FLUTICASONE PROPIONATE\FORMOTEROL FUMARATE
     Indication: Dyspnoea
     Dosage: 1 DOSAGE FORM, BID, TWICE DAILY
     Route: 065
     Dates: start: 20220224
  3. DOXOFYLLINE\MONTELUKAST SODIUM [Suspect]
     Active Substance: DOXOFYLLINE\MONTELUKAST SODIUM
     Indication: Product used for unknown indication
     Dosage: 1 DOSAGE FORM, QD AT NIGHT
     Route: 065
     Dates: start: 20220224
  4. ATORVASTATIN CALCIUM\CLOPIDOGREL BISULFATE [Suspect]
     Active Substance: ATORVASTATIN CALCIUM\CLOPIDOGREL BISULFATE
     Indication: Product used for unknown indication
     Dosage: 1 DOSAGE FORM, QD AT NIGHT
     Route: 065
     Dates: start: 20220224
  5. DOXYCYCLINE HYCLATE\LACTOBACILLUS ACIDOPHILUS [Suspect]
     Active Substance: DOXYCYCLINE HYCLATE\LACTOBACILLUS ACIDOPHILUS
     Indication: Product used for unknown indication
     Dosage: 1 DOSAGE FORM, BID (MORNING AND NIGHT)
     Route: 065
     Dates: start: 20220224
  6. LEVALBUTEROL [Suspect]
     Active Substance: LEVALBUTEROL
     Indication: Product used for unknown indication
     Dosage: 1 DOSAGE FORM, AS DIRECTED
     Route: 065

REACTIONS (3)
  - Death [Fatal]
  - Flatulence [Unknown]
  - Dyspnoea [Unknown]
